FAERS Safety Report 21942703 (Version 1)
Quarter: 2023Q1

REPORT INFORMATION
  Report Type: Spontaneous
  Country: US (occurrence: US)
  Receive Date: 20230202
  Receipt Date: 20230202
  Transmission Date: 20230418
  Serious: Yes (Other)
  Sender: FDA-Public Use
  Company Number: US-Merz Pharmaceuticals GmbH-23-00217

PATIENT
  Sex: Female

DRUGS (1)
  1. XEOMIN [Suspect]
     Active Substance: INCOBOTULINUMTOXINA
     Indication: Torticollis

REACTIONS (7)
  - Cerebrovascular accident [Unknown]
  - Injection site nodule [Unknown]
  - Strabismus [Unknown]
  - Pain in jaw [Unknown]
  - Pain [Unknown]
  - Vision blurred [Unknown]
  - Headache [Unknown]
